FAERS Safety Report 6749832-5 (Version None)
Quarter: 2010Q2

REPORT INFORMATION
  Report Type: 
  Country: None (occurrence: None)
  Receive Date: 20100601
  Receipt Date: 20100518
  Transmission Date: 20101027
  Serious: Yes (Hospitalization, Other)
  Sender: FDA-Public Use
  Company Number: AR-ELI_LILLY_AND_COMPANY-AR201005003773

PATIENT

DRUGS (1)
  1. EFFIENT [Suspect]
     Indication: ANTIPLATELET THERAPY
     Dosage: UNK, UNKNOWN
     Route: 065

REACTIONS (1)
  - FISTULA [None]
